FAERS Safety Report 21460189 (Version 1)
Quarter: 2022Q4

REPORT INFORMATION
  Report Type: Spontaneous
  Country: US (occurrence: US)
  Receive Date: 20221014
  Receipt Date: 20221014
  Transmission Date: 20230113
  Serious: No
  Sender: FDA-Public Use
  Company Number: US-Indivior Limited-INDV-131484-2021

PATIENT
  Sex: Male

DRUGS (1)
  1. SUBLOCADE [Suspect]
     Active Substance: BUPRENORPHINE
     Indication: Product used for unknown indication
     Dosage: 300 MILLIGRAM, QMO
     Route: 065

REACTIONS (4)
  - Injection site granuloma [Unknown]
  - Incorrect route of product administration [Recovered/Resolved]
  - Injection site cellulitis [Recovering/Resolving]
  - Injection site erythema [Recovering/Resolving]
